FAERS Safety Report 4796468-1 (Version None)
Quarter: 2005Q4

REPORT INFORMATION
  Report Type: 
  Country: None (occurrence: None)
  Receive Date: 20051011
  Receipt Date: 20050504
  Transmission Date: 20060501
  Serious: Yes (Other)
  Sender: FDA-Public Use
  Company Number: 2005-05-0335

PATIENT
  Age: 68 Year
  Sex: Female
  Weight: 63.9572 kg

DRUGS (2)
  1. TEMODAR [Suspect]
     Indication: GLIOBLASTOMA MULTIFORME
     Dosage: 75MG/M2 ORAL
     Route: 048
     Dates: start: 20050321, end: 20050511
  2. RADIATION THERAPY [Concomitant]

REACTIONS (1)
  - PANCYTOPENIA [None]
